FAERS Safety Report 15067965 (Version 36)
Quarter: 2023Q4

REPORT INFORMATION
  Report Type: Report from Study
  Country: CA (occurrence: CA)
  Receive Date: 20180626
  Receipt Date: 20231130
  Transmission Date: 20240110
  Serious: Yes (Other)
  Sender: FDA-Public Use
  Company Number: PHHY2018CA030086

PATIENT
  Age: 69 Year
  Sex: Female

DRUGS (23)
  1. COSENTYX [Suspect]
     Active Substance: SECUKINUMAB
     Indication: Psoriatic arthropathy
     Dosage: 300 MG, QW
     Route: 058
     Dates: start: 20180709
  2. COSENTYX [Suspect]
     Active Substance: SECUKINUMAB
     Dosage: UNK
     Route: 058
     Dates: start: 20180906
  3. COSENTYX [Suspect]
     Active Substance: SECUKINUMAB
     Dosage: 300 MG, QMO
     Route: 058
     Dates: start: 20180806
  4. COSENTYX [Suspect]
     Active Substance: SECUKINUMAB
     Dosage: 300 MG, QMO
     Route: 058
     Dates: start: 20181006
  5. COSENTYX [Suspect]
     Active Substance: SECUKINUMAB
     Dosage: 300 MG, QMO
     Route: 058
     Dates: start: 2018
  6. COSENTYX [Suspect]
     Active Substance: SECUKINUMAB
     Dosage: UNK
     Route: 058
     Dates: start: 20181206
  7. COSENTYX [Suspect]
     Active Substance: SECUKINUMAB
     Dosage: UNK
     Route: 058
     Dates: start: 20190106
  8. COSENTYX [Suspect]
     Active Substance: SECUKINUMAB
     Dosage: 450 MG, Q2W (300 MG, 150 MG ALTERNATING Q2W)
     Route: 058
  9. COSENTYX [Suspect]
     Active Substance: SECUKINUMAB
     Dosage: UNK UNK, UNKNOWN
     Route: 065
     Dates: start: 20200101
  10. COSENTYX [Suspect]
     Active Substance: SECUKINUMAB
     Dosage: 450 MG, Q2W (300 MG, 150 MG ALTERNATING Q2W)
     Route: 058
     Dates: start: 20200701
  11. COSENTYX [Suspect]
     Active Substance: SECUKINUMAB
     Dosage: 450 MG, UNKNOWN (300 MG ONCE PER MONTH, 150 MG 2 WEEKS LATER)
     Route: 058
  12. VOLTAREN [Suspect]
     Active Substance: DICLOFENAC SODIUM
     Indication: Product used for unknown indication
     Dosage: UNK
     Route: 048
  13. METHOTREXATE [Suspect]
     Active Substance: METHOTREXATE
     Indication: Product used for unknown indication
     Dosage: UNK
     Route: 065
  14. REMICADE [Concomitant]
     Active Substance: INFLIXIMAB
     Indication: Product used for unknown indication
     Dosage: UNK
     Route: 065
  15. ENBREL [Concomitant]
     Active Substance: ETANERCEPT
     Indication: Product used for unknown indication
     Dosage: UNK
     Route: 065
  16. HUMIRA [Concomitant]
     Active Substance: ADALIMUMAB
     Indication: Product used for unknown indication
     Dosage: UNK
     Route: 065
  17. CELEBREX [Concomitant]
     Active Substance: CELECOXIB
     Indication: Product used for unknown indication
     Dosage: UNK
     Route: 065
  18. ORENCIA [Concomitant]
     Active Substance: ABATACEPT
     Indication: Product used for unknown indication
     Dosage: UNK
     Route: 065
  19. SIMPONI [Concomitant]
     Active Substance: GOLIMUMAB
     Indication: Product used for unknown indication
     Dosage: UNK
     Route: 065
  20. EFFEXOR [Concomitant]
     Active Substance: VENLAFAXINE HYDROCHLORIDE
     Indication: Product used for unknown indication
     Dosage: UNK
     Route: 065
  21. LASIX [Concomitant]
     Active Substance: FUROSEMIDE
     Indication: Product used for unknown indication
     Dosage: UNK
     Route: 065
  22. BISOPROLOL FUMARATE [Concomitant]
     Active Substance: BISOPROLOL FUMARATE
     Indication: Product used for unknown indication
     Dosage: UNK
     Route: 065
  23. DILAUDID [Concomitant]
     Active Substance: HYDROMORPHONE HYDROCHLORIDE
     Indication: Product used for unknown indication
     Dosage: UNK
     Route: 065

REACTIONS (33)
  - Ankylosing spondylitis [Not Recovered/Not Resolved]
  - Arthralgia [Unknown]
  - Neck pain [Unknown]
  - Back pain [Unknown]
  - Fibromyalgia [Unknown]
  - Joint swelling [Unknown]
  - Musculoskeletal stiffness [Unknown]
  - Pain in extremity [Recovering/Resolving]
  - Suicidal ideation [Unknown]
  - Psoriatic arthropathy [Unknown]
  - Gait disturbance [Unknown]
  - Mobility decreased [Unknown]
  - Dysstasia [Unknown]
  - C-reactive protein increased [Unknown]
  - Fatigue [Unknown]
  - Sleep disorder [Unknown]
  - Burning sensation [Unknown]
  - Pain [Not Recovered/Not Resolved]
  - Peripheral swelling [Unknown]
  - Insomnia [Unknown]
  - Malaise [Unknown]
  - Gastroenteritis [Unknown]
  - Diarrhoea [Unknown]
  - Headache [Unknown]
  - Nausea [Recovered/Resolved]
  - Foot deformity [Unknown]
  - Weight decreased [Unknown]
  - Muscle spasms [Unknown]
  - Nausea [Unknown]
  - Anxiety [Unknown]
  - Product prescribing error [Unknown]
  - Inappropriate schedule of product administration [Unknown]
  - Therapeutic product effect incomplete [Unknown]

NARRATIVE: CASE EVENT DATE: 20180101
